FAERS Safety Report 14661807 (Version 1)
Quarter: 2018Q1

REPORT INFORMATION
  Report Type: Spontaneous
  Country: US (occurrence: US)
  Receive Date: 20180318
  Receipt Date: 20180318
  Transmission Date: 20180509
  Serious: Yes (Death, Hospitalization)
  Sender: FDA-Public Use
  Company Number: None

PATIENT
  Sex: Male
  Weight: 82.9 kg

DRUGS (3)
  1. CARBOPLATIN. [Suspect]
     Active Substance: CARBOPLATIN
     Dates: end: 20160706
  2. METFORMIN HYDROCHLORIDE. [Suspect]
     Active Substance: METFORMIN HYDROCHLORIDE
     Dates: end: 20160709
  3. TAXOL [Suspect]
     Active Substance: PACLITAXEL
     Dates: end: 20160706

REACTIONS (7)
  - Cough [None]
  - Atrial fibrillation [None]
  - Dyspnoea [None]
  - Cardio-respiratory arrest [None]
  - Productive cough [None]
  - Infection [None]
  - Unresponsive to stimuli [None]

NARRATIVE: CASE EVENT DATE: 20160715
